FAERS Safety Report 7553341-3 (Version None)
Quarter: 2011Q2

REPORT INFORMATION
  Report Type: 
  Country: None (occurrence: None)
  Receive Date: 20110617
  Receipt Date: 20110609
  Transmission Date: 20111010
  Serious: Yes (Other)
  Sender: FDA-Public Use
  Company Number: GB-AMGEN-GBRSP2011030327

PATIENT
  Age: 61 Year
  Sex: Male

DRUGS (2)
  1. LEFLUNOMIDE [Concomitant]
     Dosage: UNK
  2. ETANERCEPT [Suspect]
     Indication: RHEUMATOID ARTHRITIS
     Dosage: 50 MG, WEEKLY
     Route: 058
     Dates: start: 20050101, end: 20100101

REACTIONS (1)
  - RENAL CELL CARCINOMA STAGE I [None]
